FAERS Safety Report 16291054 (Version 1)
Quarter: 2019Q2

REPORT INFORMATION
  Report Type: Spontaneous
  Country: US (occurrence: US)
  Receive Date: 20190509
  Receipt Date: 20190509
  Transmission Date: 20190711
  Serious: No
  Sender: FDA-Public Use
  Company Number: US-PFIZER INC-2019194401

PATIENT
  Age: 47 Year
  Sex: Female
  Weight: 115.21 kg

DRUGS (1)
  1. LYRICA [Suspect]
     Active Substance: PREGABALIN
     Indication: NEUROPATHY PERIPHERAL
     Dosage: 150 MG, 3X/DAY (EVERY 8 HOURS)
     Route: 048

REACTIONS (2)
  - Feeling abnormal [Unknown]
  - Off label use [Unknown]
